FAERS Safety Report 7340416-7 (Version None)
Quarter: 2011Q1

REPORT INFORMATION
  Report Type: 
  Country: None (occurrence: None)
  Receive Date: 20110309
  Receipt Date: 20110228
  Transmission Date: 20110831
  Serious: Yes (Other)
  Sender: FDA-Public Use
  Company Number: US-JNJFOC-20110302750

PATIENT
  Age: 65 Year
  Sex: Male

DRUGS (3)
  1. REOPRO [Suspect]
     Indication: PRODUCT USED FOR UNKNOWN INDICATION
  2. ASPIRIN [Concomitant]
     Indication: ILL-DEFINED DISORDER
     Route: 065
  3. EFFIENT [Concomitant]
     Route: 065

REACTIONS (1)
  - THROMBOSIS IN DEVICE [None]
